FAERS Safety Report 6223041-0 (Version None)
Quarter: 2009Q2

REPORT INFORMATION
  Report Type: 
  Country: None (occurrence: None)
  Receive Date: 20090611
  Receipt Date: 20090604
  Transmission Date: 20091009
  Serious: Yes (Other)
  Sender: FDA-Public Use
  Company Number: AU-B.I. PHARMACEUTICALS,INC./RIDGEFIELD-2009-DE-04138GD

PATIENT
  Age: 26 Year
  Sex: Female

DRUGS (2)
  1. CLONIDINE [Suspect]
     Dosage: 100MG
     Route: 048
  2. BUPRENORPHINE HCL [Suspect]
     Route: 048

REACTIONS (2)
  - DRUG WITHDRAWAL SYNDROME [None]
  - HAEMODYNAMIC TEST ABNORMAL [None]
